FAERS Safety Report 4988047-8 (Version None)
Quarter: 2006Q2

REPORT INFORMATION
  Report Type: 
  Country: None (occurrence: None)
  Receive Date: 20060426
  Receipt Date: 20060414
  Transmission Date: 20061013
  Serious: Yes (Death)
  Sender: FDA-Public Use
  Company Number: 2006052015

PATIENT
  Age: 80 Year
  Sex: Male

DRUGS (4)
  1. VFEND [Suspect]
     Indication: ILL-DEFINED DISORDER
     Dosage: SEE IMAGE
     Route: 042
     Dates: start: 20060309, end: 20060322
  2. VFEND [Suspect]
     Indication: ILL-DEFINED DISORDER
     Dosage: SEE IMAGE
     Route: 042
     Dates: start: 20060323
  3. BUP-4 (PROPIVERNE HYDROCHLORIDE) [Concomitant]
  4. PLETAL [Concomitant]

REACTIONS (4)
  - ASPERGILLOMA [None]
  - CONDITION AGGRAVATED [None]
  - GENERAL PHYSICAL HEALTH DETERIORATION [None]
  - HEPATIC FUNCTION ABNORMAL [None]
